FAERS Safety Report 14007208 (Version 1)
Quarter: 2017Q3

REPORT INFORMATION
  Report Type: Spontaneous
  Country: US (occurrence: US)
  Receive Date: 20170924
  Receipt Date: 20170924
  Transmission Date: 20171128
  Serious: Yes (Hospitalization)
  Sender: FDA-Public Use
  Company Number: None

PATIENT
  Age: 66 Year
  Sex: Female
  Weight: 56.25 kg

DRUGS (1)
  1. PEG 3350 [Suspect]
     Active Substance: POLYETHYLENE GLYCOL 3350
     Indication: COLONOSCOPY
     Dosage: ?          QUANTITY:240 OUNCE(S);OTHER FREQUENCY:THE WHOLE CONTAINE;?
     Route: 048

REACTIONS (1)
  - Discoloured vomit [None]

NARRATIVE: CASE EVENT DATE: 20170924
